FAERS Safety Report 20808472 (Version 1)
Quarter: 2022Q2

REPORT INFORMATION
  Report Type: Spontaneous
  Country: FR (occurrence: FR)
  Receive Date: 20220510
  Receipt Date: 20220510
  Transmission Date: 20220721
  Serious: Yes (Other)
  Sender: FDA-Public Use
  Company Number: FR-MACLEODS PHARMACEUTICALS US LTD-MAC2022035499

PATIENT

DRUGS (1)
  1. LIDOCAINE [Suspect]
     Active Substance: LIDOCAINE
     Indication: Local anaesthesia
     Dosage: 1.4 MILLIGRAM/KILOGRAM, SINGLE
     Route: 065

REACTIONS (3)
  - Circulatory collapse [Recovered/Resolved]
  - Local anaesthetic systemic toxicity [Unknown]
  - Maternal exposure during pregnancy [Unknown]
